FAERS Safety Report 8084720-6 (Version None)
Quarter: 2012Q1

REPORT INFORMATION
  Report Type: 
  Country: None (occurrence: None)
  Receive Date: 20120128
  Receipt Date: 20110311
  Transmission Date: 20120608
  Serious: No
  Sender: FDA-Public Use
  Company Number: US-ABBOTT-11P-163-0710981-00

PATIENT
  Age: 34 Year
  Sex: Male

DRUGS (3)
  1. ASACOL [Concomitant]
     Indication: CROHN'S DISEASE
     Dosage: 9 TABS
  2. AZATHIOPRINE [Concomitant]
     Indication: CROHN'S DISEASE
     Dosage: 3 TABS
  3. HUMIRA [Suspect]
     Indication: CROHN'S DISEASE
     Dates: start: 20101201

REACTIONS (1)
  - ABDOMINAL PAIN UPPER [None]
